FAERS Safety Report 17164119 (Version 3)
Quarter: 2020Q3

REPORT INFORMATION
  Report Type: Spontaneous
  Country: US (occurrence: US)
  Receive Date: 20191217
  Receipt Date: 20200717
  Transmission Date: 20201102
  Serious: No
  Sender: FDA-Public Use
  Company Number: US-VERTEX PHARMACEUTICALS-2019-012509

PATIENT
  Age: 30 Year
  Sex: Male

DRUGS (1)
  1. TRIKAFTA [Suspect]
     Active Substance: ELEXACAFTOR\IVACAFTOR\TEZACAFTOR
     Indication: CYSTIC FIBROSIS
     Dosage: 100 MG ELEXACAFTOR/ 50 MG TEZACAFTOR/ 75 MG IVACAFTOR; 150MG IVACAFTOR, STANDARD DOSAGE REGIMEN
     Route: 048
     Dates: start: 2019

REACTIONS (4)
  - Urine viscosity increased [Recovered/Resolved]
  - Testis discomfort [Recovered/Resolved]
  - Testicular pain [Recovered/Resolved]
  - Semen volume increased [Recovered/Resolved]

NARRATIVE: CASE EVENT DATE: 2019
